FAERS Safety Report 6734620-6 (Version None)
Quarter: 2010Q2

REPORT INFORMATION
  Report Type: 
  Country: None (occurrence: None)
  Receive Date: 20100520
  Receipt Date: 20100511
  Transmission Date: 20101027
  Serious: Yes (Life-Threatening, Hospitalization, Other)
  Sender: FDA-Public Use
  Company Number: ES-GENENTECH-269993

PATIENT
  Sex: Female

DRUGS (26)
  1. RITUXIMAB [Suspect]
     Indication: RHEUMATOID ARTHRITIS
     Dosage: 1000 MG, DAYS 1+15
     Route: 042
     Dates: start: 20050803, end: 20070912
  2. METHYLPREDNISOLONE [Suspect]
     Indication: RHEUMATOID ARTHRITIS
     Dosage: 100 MG, DAYS 1+15
     Route: 042
     Dates: start: 20050803, end: 20070912
  3. PREDNISONE TAB [Suspect]
     Indication: RHEUMATOID ARTHRITIS
     Dosage: 30 MG, DAYS 2-14
     Route: 048
     Dates: start: 20050803
  4. METHOTREXATE [Concomitant]
     Indication: DRUG USE FOR UNKNOWN INDICATION
  5. NOVORAPID [Concomitant]
     Indication: DRUG USE FOR UNKNOWN INDICATION
     Dosage: UNK
     Route: 058
     Dates: start: 20081126, end: 20081203
  6. OMEPRAZOLE [Concomitant]
     Indication: DRUG USE FOR UNKNOWN INDICATION
     Dosage: UNK
     Route: 048
     Dates: start: 20081126, end: 20081203
  7. ZYLORIC [Concomitant]
     Indication: DRUG USE FOR UNKNOWN INDICATION
     Dosage: UNK
     Route: 048
     Dates: start: 20081126, end: 20081203
  8. FILGRASTIM [Concomitant]
     Indication: DRUG USE FOR UNKNOWN INDICATION
     Dosage: UNK
     Route: 058
     Dates: start: 20081126, end: 20081128
  9. RIFATER [Concomitant]
     Indication: DRUG USE FOR UNKNOWN INDICATION
     Dosage: UNK
     Route: 048
     Dates: start: 20081126, end: 20081127
  10. RIFATER [Concomitant]
     Dosage: UNK
     Route: 048
     Dates: start: 20081126, end: 20081201
  11. RIFATER [Concomitant]
     Dosage: UNK
     Route: 048
     Dates: start: 20081201, end: 20081203
  12. MYCOSTATIN [Concomitant]
     Indication: DRUG USE FOR UNKNOWN INDICATION
     Dosage: UNK
     Route: 048
     Dates: start: 20081126, end: 20081127
  13. MYCOSTATIN [Concomitant]
     Dosage: UNK
     Route: 048
     Dates: start: 20081129, end: 20081130
  14. MYCOSTATIN [Concomitant]
     Dosage: UNK
     Route: 048
     Dates: start: 20081127, end: 20081203
  15. CEFTAZIDIME [Concomitant]
     Indication: DRUG USE FOR UNKNOWN INDICATION
     Dosage: UNK
     Route: 042
     Dates: start: 20081126, end: 20081203
  16. URBASON [Concomitant]
     Indication: DRUG USE FOR UNKNOWN INDICATION
     Dosage: UNK
     Route: 048
     Dates: start: 20081126, end: 20081127
  17. URBASON [Concomitant]
     Dosage: UNK
     Route: 048
     Dates: start: 20081126, end: 20081203
  18. URBASON [Concomitant]
     Dosage: UNK
     Route: 048
     Dates: start: 20081127, end: 20081128
  19. ADOLONTA [Concomitant]
     Indication: DRUG USE FOR UNKNOWN INDICATION
     Dosage: UNK
     Route: 042
     Dates: start: 20081126, end: 20081203
  20. CALCIUM CARBONATE [Concomitant]
     Indication: DRUG USE FOR UNKNOWN INDICATION
     Dosage: UNK
     Dates: start: 20081126, end: 20081203
  21. VITAMIN D3 [Concomitant]
     Indication: DRUG USE FOR UNKNOWN INDICATION
     Dosage: UNK
     Route: 048
     Dates: start: 20081126, end: 20081203
  22. PRAVASTATINA [Concomitant]
     Indication: DRUG USE FOR UNKNOWN INDICATION
     Dosage: UNK
     Route: 048
     Dates: start: 20081126, end: 20081203
  23. LIDOCAINA [Concomitant]
     Indication: DRUG USE FOR UNKNOWN INDICATION
     Dosage: UNK
     Route: 048
     Dates: start: 20081126, end: 20081203
  24. AMIKACIN [Concomitant]
     Indication: DRUG USE FOR UNKNOWN INDICATION
     Dosage: UNK
     Route: 042
     Dates: start: 20081126, end: 20081128
  25. AMIKACIN [Concomitant]
     Dosage: UNK
     Route: 042
     Dates: start: 20081129, end: 20081202
  26. TRAMADOL HCL [Concomitant]
     Indication: DRUG USE FOR UNKNOWN INDICATION

REACTIONS (3)
  - HODGKIN'S DISEASE [None]
  - MUCOSAL INFLAMMATION [None]
  - NEUTROPENIA [None]
